FAERS Safety Report 18210715 (Version 1)
Quarter: 2020Q3

REPORT INFORMATION
  Report Type: Spontaneous
  Country: US (occurrence: US)
  Receive Date: 20200829
  Receipt Date: 20200829
  Transmission Date: 20201103
  Serious: No
  Sender: FDA-Public Use
  Company Number: US-ASTRAZENECA-2020SF09110

PATIENT
  Sex: Female

DRUGS (1)
  1. BYDUREON [Suspect]
     Active Substance: EXENATIDE
     Route: 065

REACTIONS (7)
  - Polycystic ovaries [Unknown]
  - Injection site discolouration [Not Recovered/Not Resolved]
  - Abdominal pain upper [Unknown]
  - Glucose tolerance impaired [Unknown]
  - Weight increased [Unknown]
  - Injection site nodule [Unknown]
  - Cyst [Unknown]
